FAERS Safety Report 5921190-5 (Version None)
Quarter: 2008Q4

REPORT INFORMATION
  Report Type: 
  Country: None (occurrence: None)
  Receive Date: 20081016
  Receipt Date: 20081009
  Transmission Date: 20090506
  Serious: Yes (Hospitalization, Disabling, Other)
  Sender: FDA-Public Use
  Company Number: US-B.I. PHARMACEUTICALS,INC./RIDGEFIELD-2008-BP-10986BP

PATIENT
  Sex: Female

DRUGS (21)
  1. MIRAPEX [Suspect]
     Indication: RESTLESS LEGS SYNDROME
     Dosage: 2MG
     Route: 048
     Dates: start: 19970101, end: 20071201
  2. MIRAPEX [Suspect]
     Dosage: 4MG
     Route: 048
     Dates: start: 20080101
  3. PREDNISONE TAB [Concomitant]
     Indication: ADRENAL DISORDER
     Dosage: 5MG
  4. SYNTHROID [Concomitant]
     Indication: HYPOTHYROIDISM
     Dosage: 137MG
  5. PAQUENIL [Concomitant]
     Indication: SYSTEMIC LUPUS ERYTHEMATOSUS
     Dosage: 800MG
  6. PROVIGIL [Concomitant]
     Dosage: 200MG
  7. EFFEXOR [Concomitant]
  8. HORMONE PATCH [Concomitant]
  9. METANX [Concomitant]
     Indication: NERVOUSNESS
  10. METANX [Concomitant]
     Indication: VITAMIN SUPPLEMENTATION
  11. AMARYL [Concomitant]
     Indication: DIABETES MELLITUS
  12. LUNESTA [Concomitant]
  13. MULTI-VITAMINS [Concomitant]
  14. OXYCODONE HCL [Concomitant]
     Indication: BREAKTHROUGH PAIN
  15. AMATIZA [Concomitant]
     Indication: CONSTIPATION
     Dosage: 24MG
  16. MIRALAX [Concomitant]
     Indication: CONSTIPATION
     Dosage: 17MG
  17. ASCORBIC ACID [Concomitant]
     Dosage: 1000MG
  18. EASY IRON [Concomitant]
     Indication: RESTLESS LEGS SYNDROME
     Dosage: 28MG
  19. CALCIUM [Concomitant]
     Dosage: 2000MG
  20. FENTANYL CITRATE [Concomitant]
     Indication: BACK PAIN
  21. ESTRADERM [Concomitant]
     Indication: HYSTERECTOMY

REACTIONS (13)
  - ADDISON'S DISEASE [None]
  - BACK PAIN [None]
  - BLOOD CALCIUM DECREASED [None]
  - BLOOD IRON DECREASED [None]
  - DIABETIC NEUROPATHY [None]
  - FALL [None]
  - FIBROMYALGIA [None]
  - HEAD INJURY [None]
  - HEMIPARESIS [None]
  - SLEEP APNOEA SYNDROME [None]
  - SOMNOLENCE [None]
  - SUDDEN ONSET OF SLEEP [None]
  - SYSTEMIC LUPUS ERYTHEMATOSUS [None]
